FAERS Safety Report 7569664-8 (Version None)
Quarter: 2011Q2

REPORT INFORMATION
  Report Type: 
  Country: None (occurrence: None)
  Receive Date: 20110624
  Receipt Date: 20110621
  Transmission Date: 20111010
  Serious: Yes (Other)
  Sender: FDA-Public Use
  Company Number: US-PFIZER INC-2011137537

PATIENT
  Age: 81 Year
  Sex: Female
  Weight: 53 kg

DRUGS (4)
  1. XALATAN [Suspect]
     Indication: GLAUCOMA
     Dosage: 1 GTT IN EACH EYE, 1X/DAY
     Route: 047
     Dates: start: 20070101, end: 20110531
  2. LEVOXYL [Concomitant]
     Indication: HYPOTHYROIDISM
     Dosage: UNK
  3. ASPIRIN [Concomitant]
     Indication: RETINAL VEIN OCCLUSION
     Dosage: 81 MG, 1X/DAY
  4. LATANOPROST [Suspect]
     Indication: GLAUCOMA
     Dosage: UNK
     Route: 047
     Dates: start: 20110531, end: 20110619

REACTIONS (2)
  - HEADACHE [None]
  - EYE PAIN [None]
